FAERS Safety Report 9060734 (Version 1)
Quarter: 2013Q1

REPORT INFORMATION
  Report Type: Spontaneous
  Country: ES (occurrence: ES)
  Receive Date: 20130204
  Receipt Date: 20130204
  Transmission Date: 20140127
  Serious: Yes (Other)
  Sender: FDA-Public Use
  Company Number: ES-ABBOTT-13P-144-1043259-00

PATIENT
  Age: 29 Year
  Sex: Female
  Weight: 100 kg

DRUGS (3)
  1. HUMIRA [Suspect]
     Indication: COLITIS ULCERATIVE
     Dosage: 160 MG
     Route: 058
     Dates: start: 20121113, end: 20121113
  2. HUMIRA [Suspect]
     Indication: ANAL FISTULA
     Route: 058
     Dates: start: 201211, end: 20121117
  3. SALOFALK [Concomitant]
     Indication: PROCTITIS ULCERATIVE
     Route: 054
     Dates: start: 2010

REACTIONS (4)
  - Joint stiffness [Recovered/Resolved]
  - Bronchospasm [Recovered/Resolved]
  - Nocturnal dyspnoea [Recovered/Resolved]
  - Chest pain [Recovered/Resolved]
